FAERS Safety Report 5086976-0 (Version None)
Quarter: 2006Q3

REPORT INFORMATION
  Report Type: 
  Country: None (occurrence: None)
  Receive Date: 20060821
  Receipt Date: 20060804
  Transmission Date: 20061208
  Serious: Yes (Other)
  Sender: FDA-Public Use
  Company Number: 2006AL002182

PATIENT
  Sex: Male

DRUGS (1)
  1. DICLOFENAC SODIUM [Suspect]
     Indication: OSTEOARTHRITIS
     Dosage: PO
     Route: 048
     Dates: start: 20041001

REACTIONS (11)
  - CHEST DISCOMFORT [None]
  - CONFUSIONAL STATE [None]
  - DIPLOPIA [None]
  - DISTURBANCE IN ATTENTION [None]
  - FEELING ABNORMAL [None]
  - FEELING DRUNK [None]
  - HEADACHE [None]
  - NIGHTMARE [None]
  - SLEEP DISORDER [None]
  - SOMNOLENCE [None]
  - VISION BLURRED [None]
